FAERS Safety Report 7271456-4 (Version None)
Quarter: 2010Q4

REPORT INFORMATION
  Report Type: 
  Country: None (occurrence: None)
  Receive Date: 20101130
  Receipt Date: 20100121
  Transmission Date: 20110411
  Serious: Yes (Hospitalization, Other)
  Sender: FDA-Public Use
  Company Number: 2010SP004581

PATIENT
  Age: 35 Year
  Sex: Female
  Weight: 102.5129 kg

DRUGS (2)
  1. NUVARING [Suspect]
     Indication: CONTRACEPTION
     Dates: start: 20070101, end: 20080101
  2. NUVARING [Suspect]
     Indication: MENSTRUAL DISORDER
     Dates: start: 20070101, end: 20080101

REACTIONS (4)
  - DEEP VEIN THROMBOSIS [None]
  - HEADACHE [None]
  - MIGRAINE [None]
  - PULMONARY EMBOLISM [None]
